FAERS Safety Report 13782088 (Version 1)
Quarter: 2017Q3

REPORT INFORMATION
  Report Type: Spontaneous
  Country: US (occurrence: US)
  Receive Date: 20170724
  Receipt Date: 20170724
  Transmission Date: 20171127
  Serious: Yes (Life-Threatening, Disabling, Other)
  Sender: FDA-Public Use
  Company Number: None

PATIENT
  Age: 72 Year
  Sex: Male
  Weight: 90 kg

DRUGS (7)
  1. JANUMET [Concomitant]
     Active Substance: METFORMIN HYDROCHLORIDE\SITAGLIPTIN PHOSPHATE
  2. TYLENOL [Concomitant]
     Active Substance: ACETAMINOPHEN
  3. METFORMIN HCL EXTENDED-RELEASE TABLETS [Suspect]
     Active Substance: METFORMIN HYDROCHLORIDE
     Indication: TYPE 2 DIABETES MELLITUS
     Dosage: ?          OTHER STRENGTH:MG;QUANTITY:1 TABLET(S);?
     Route: 048
     Dates: start: 20170203, end: 20170602
  4. RED OMEGA FISH OIL [Concomitant]
  5. GENERIC THYROID RX [Concomitant]
  6. BABY ASPIRIN [Concomitant]
     Active Substance: ASPIRIN
  7. GENERIC BLOOD PRESSURE RX [Concomitant]

REACTIONS (9)
  - Somnolence [None]
  - Blood triglycerides increased [None]
  - Dyspnoea [None]
  - Product substitution issue [None]
  - Cardiomegaly [None]
  - Abdominal distension [None]
  - Blood glucose increased [None]
  - Back pain [None]
  - Glycosylated haemoglobin increased [None]

NARRATIVE: CASE EVENT DATE: 20170512
